FAERS Safety Report 20216918 (Version 1)
Quarter: 2021Q4

REPORT INFORMATION
  Report Type: Spontaneous
  Country: NL (occurrence: NL)
  Receive Date: 20211222
  Receipt Date: 20211222
  Transmission Date: 20220303
  Serious: Yes (Other)
  Sender: FDA-Public Use
  Company Number: NL-SLATE RUN PHARMACEUTICALS-21NL000838

PATIENT

DRUGS (9)
  1. VORICONAZOLE [Suspect]
     Active Substance: VORICONAZOLE
     Indication: Candida infection
     Dosage: CONTINUOUS CHRONIC SYSTEMIC
  2. VORICONAZOLE [Suspect]
     Active Substance: VORICONAZOLE
     Dosage: SYSTEMICALLY
  3. VORICONAZOLE [Suspect]
     Active Substance: VORICONAZOLE
     Dosage: UNK
     Route: 003
  4. VORICONAZOLE [Suspect]
     Active Substance: VORICONAZOLE
     Dosage: 200 MILLIGRAM, BID
  5. VORICONAZOLE [Suspect]
     Active Substance: VORICONAZOLE
     Dosage: UNK
     Route: 003
  6. VORICONAZOLE [Suspect]
     Active Substance: VORICONAZOLE
     Dosage: 100 ?G/0.1 ML, SIX INJECTIONS
  7. VORICONAZOLE [Suspect]
     Active Substance: VORICONAZOLE
     Dosage: 1 DOSAGE FORM, Q 3 HR
     Route: 047
  8. CHLORHEXIDINE ACETATE [Concomitant]
     Active Substance: CHLORHEXIDINE ACETATE
     Indication: Candida infection
     Dosage: UNK, Q 3 HR
  9. NATAMYCINE [Concomitant]
     Indication: Prophylaxis
     Route: 003

REACTIONS (3)
  - Staphylococcal infection [Recovering/Resolving]
  - Treatment failure [Recovered/Resolved]
  - Candida infection [Recovered/Resolved]
